FAERS Safety Report 5887331-3 (Version None)
Quarter: 2008Q3

REPORT INFORMATION
  Report Type: 
  Country: None (occurrence: None)
  Receive Date: 20080915
  Receipt Date: 20080910
  Transmission Date: 20090109
  Serious: Yes (Life-Threatening, Hospitalization)
  Sender: FDA-Public Use
  Company Number: CLOF-1000282

PATIENT
  Age: 48 Year
  Sex: Male

DRUGS (4)
  1. CLOFARABINE (CLOFARABINE) SOLUTION FOR INFUSION [Suspect]
     Indication: MYELOID LEUKAEMIA
     Dosage: 56 MG, QD, INTRAVENOUS
     Route: 042
     Dates: start: 20080806, end: 20080809
  2. BUSULFAN (BUSULFAN) [Suspect]
     Indication: MYELOID LEUKAEMIA
     Dosage: 244 MG, QD, INTRAVENOUS; 368 MG, QD, INTRAVENOUS
     Route: 042
     Dates: start: 20080801, end: 20080801
  3. BUSULFAN (BUSULFAN) [Suspect]
     Indication: MYELOID LEUKAEMIA
     Dosage: 244 MG, QD, INTRAVENOUS; 368 MG, QD, INTRAVENOUS
     Route: 042
     Dates: start: 20080801, end: 20080801
  4. FLUDARABINE PHOSPHATE [Suspect]
     Indication: MYELOID LEUKAEMIA
     Dosage: 19 MG, QD, INTRAVENOUS
     Route: 042
     Dates: start: 20080806, end: 20080809

REACTIONS (5)
  - AGITATION [None]
  - MENTAL STATUS CHANGES [None]
  - MOUTH HAEMORRHAGE [None]
  - MUCOSAL INFLAMMATION [None]
  - PHARYNGEAL OEDEMA [None]
